FAERS Safety Report 15996897 (Version 1)
Quarter: 2019Q1

REPORT INFORMATION
  Report Type: Report from Study
  Country: IN (occurrence: IN)
  Receive Date: 20190222
  Receipt Date: 20190222
  Transmission Date: 20190418
  Serious: Yes (Death, Hospitalization)
  Sender: FDA-Public Use
  Company Number: IN-SA-2019SA047013

PATIENT
  Age: 60 Year
  Sex: Male
  Weight: 60 kg

DRUGS (1)
  1. INSULIN GLARGINE [Suspect]
     Active Substance: INSULIN GLARGINE
     Indication: DIABETES MELLITUS
     Dosage: 10 U, QD
     Route: 058
     Dates: start: 20181004

REACTIONS (2)
  - Nephropathy [Fatal]
  - Hepatitis [Unknown]
